FAERS Safety Report 4323598-0 (Version None)
Quarter: 2004Q1

REPORT INFORMATION
  Report Type: 
  Country: None (occurrence: None)
  Receive Date: 20040323
  Receipt Date: 20040210
  Transmission Date: 20041129
  Serious: No
  Sender: FDA-Public Use
  Company Number: US_0402100582

PATIENT
  Sex: Male

DRUGS (9)
  1. CIALIS [Suspect]
     Indication: ERECTILE DYSFUNCTION
  2. AVAPRO [Concomitant]
  3. NORVASC [Concomitant]
  4. LOZOL [Concomitant]
  5. ALTACE [Concomitant]
  6. EASPRIN (ACETYLSALOCYLIC) [Concomitant]
  7. MULTIVITAMIN [Concomitant]
  8. SILDENAFIL [Concomitant]
  9. VARDENAFIL [Concomitant]

REACTIONS (4)
  - ARTHRALGIA [None]
  - BACK PAIN [None]
  - HEADACHE [None]
  - NASAL CONGESTION [None]
